FAERS Safety Report 11495419 (Version 1)
Quarter: 2015Q3

REPORT INFORMATION
  Report Type: Spontaneous
  Country: US (occurrence: US)
  Receive Date: 20150911
  Receipt Date: 20150911
  Transmission Date: 20151125
  Serious: No
  Sender: FDA-Public Use
  Company Number: US-ROCHE-795979

PATIENT
  Sex: Female

DRUGS (3)
  1. PEGASYS [Suspect]
     Active Substance: PEGINTERFERON ALFA-2A
     Indication: CHRONIC HEPATITIS C
     Route: 065
     Dates: start: 20110803, end: 20120113
  2. RIBAVIRIN. [Suspect]
     Active Substance: RIBAVIRIN
     Indication: CHRONIC HEPATITIS C
     Route: 065
     Dates: start: 20110803, end: 20120113
  3. INCIVO [Suspect]
     Active Substance: TELAPREVIR
     Indication: CHRONIC HEPATITIS C
     Dosage: DRUG NAME :REPORTED AS INCIVEK
     Route: 065
     Dates: start: 20110803, end: 20111019

REACTIONS (11)
  - Fatigue [Unknown]
  - Headache [Unknown]
  - Anaemia [Unknown]
  - Breath odour [Unknown]
  - Chills [Unknown]
  - Alopecia [Unknown]
  - Asthenia [Unknown]
  - Pyrexia [Unknown]
  - White blood cell count decreased [Unknown]
  - Dyspnoea exertional [Unknown]
  - Decreased appetite [Unknown]
